FAERS Safety Report 11789685 (Version 1)
Quarter: 2015Q4

REPORT INFORMATION
  Report Type: Spontaneous
  Country: US (occurrence: US)
  Receive Date: 20151201
  Receipt Date: 20151201
  Transmission Date: 20160305
  Serious: Yes (Other)
  Sender: FDA-Public Use
  Company Number: US-TEVA-612575USA

PATIENT
  Age: 20 Year
  Sex: Female
  Weight: 65.83 kg

DRUGS (1)
  1. SPRINTEC [Suspect]
     Active Substance: ETHINYL ESTRADIOL\NORGESTIMATE
     Dosage: 0.25MG/0.035MG
     Route: 065
     Dates: start: 201508

REACTIONS (4)
  - Depression suicidal [Unknown]
  - Abnormal loss of weight [Unknown]
  - Panic attack [Not Recovered/Not Resolved]
  - Phobia [Not Recovered/Not Resolved]

NARRATIVE: CASE EVENT DATE: 201510
